FAERS Safety Report 4951783-3 (Version None)
Quarter: 2006Q1

REPORT INFORMATION
  Report Type: 
  Country: None (occurrence: None)
  Receive Date: 20060323
  Receipt Date: 20060213
  Transmission Date: 20060701
  Serious: Yes (Other)
  Sender: FDA-Public Use
  Company Number: 2006UW02448

PATIENT
  Age: 30 Year
  Sex: Male

DRUGS (3)
  1. SEROQUEL [Suspect]
     Indication: INSOMNIA
     Route: 048
     Dates: end: 20060130
  2. LEXAPRO [Suspect]
     Indication: ANXIETY
     Route: 048
     Dates: end: 20051201
  3. LEXAPRO [Suspect]
     Route: 048
     Dates: start: 20051201, end: 20060213

REACTIONS (3)
  - DEPRESSION [None]
  - IRRITABILITY [None]
  - WHITE BLOOD CELL COUNT INCREASED [None]
